FAERS Safety Report 6114195-5 (Version None)
Quarter: 2009Q1

REPORT INFORMATION
  Report Type: 
  Country: None (occurrence: None)
  Receive Date: 20090312
  Receipt Date: 20080618
  Transmission Date: 20090719
  Serious: No
  Sender: FDA-Public Use
  Company Number: US-ABBOTT-08P-163-0458594-00

PATIENT
  Sex: Female
  Weight: 81.72 kg

DRUGS (5)
  1. DEPAKOTE [Suspect]
     Indication: BIPOLAR DISORDER
     Dosage: 1500 MG DAILY
     Route: 048
     Dates: start: 20070202, end: 20070401
  2. QUETIAPINE FUMARATE [Suspect]
     Indication: BIPOLAR DISORDER
     Route: 048
     Dates: start: 20070203
  3. VITAMINS [Concomitant]
     Indication: DRUG USE FOR UNKNOWN INDICATION
     Route: 048
  4. OMEPRAZOLE MAGNESIUM [Concomitant]
     Indication: GASTROOESOPHAGEAL REFLUX DISEASE
     Route: 048
     Dates: start: 20080401
  5. LOVASTATIN [Concomitant]
     Indication: BLOOD CHOLESTEROL
     Route: 048
     Dates: start: 20080507

REACTIONS (2)
  - ALOPECIA [None]
  - WEIGHT INCREASED [None]
